FAERS Safety Report 12373528 (Version 3)
Quarter: 2016Q3

REPORT INFORMATION
  Report Type: Spontaneous
  Country: US (occurrence: US)
  Receive Date: 20160516
  Receipt Date: 20160725
  Transmission Date: 20161109
  Serious: Yes (Hospitalization, Other)
  Sender: FDA-Public Use
  Company Number: PHEH2016US011243

PATIENT
  Age: 57 Year
  Sex: Female
  Weight: 93.89 kg

DRUGS (1)
  1. COSENTYX [Suspect]
     Active Substance: SECUKINUMAB
     Indication: PSORIASIS
     Dosage: 150 MG, QMO
     Route: 058
     Dates: start: 20150806

REACTIONS (6)
  - Foot fracture [Unknown]
  - Fibula fracture [Unknown]
  - Pneumonia [Unknown]
  - Fall [Unknown]
  - Avulsion fracture [Unknown]
  - Head injury [Unknown]

NARRATIVE: CASE EVENT DATE: 20160214
